FAERS Safety Report 5474804-0 (Version None)
Quarter: 2007Q3

REPORT INFORMATION
  Report Type: 
  Country: None (occurrence: None)
  Receive Date: 20070927
  Receipt Date: 20070927
  Transmission Date: 20080115
  Serious: Yes (Other)
  Sender: FDA-Public Use
  Company Number: None

PATIENT
  Sex: Female

DRUGS (1)
  1. FORTEO [Suspect]
     Indication: OSTEOPOROSIS
     Dosage: 20 MCG  DAILY  SQ
     Route: 058
     Dates: start: 20070719, end: 20070910

REACTIONS (2)
  - BONE PAIN [None]
  - PALPITATIONS [None]
